FAERS Safety Report 9053466 (Version 2)
Quarter: 2013Q1

REPORT INFORMATION
  Report Type: Spontaneous
  Country: FR (occurrence: FR)
  Receive Date: 20130208
  Receipt Date: 20130301
  Transmission Date: 20140127
  Serious: Yes (Other)
  Sender: FDA-Public Use
  Company Number: FR-JNJFOC-20130201119

PATIENT
  Sex: Male

DRUGS (2)
  1. XARELTO [Suspect]
     Indication: EMBOLISM VENOUS
     Route: 048
     Dates: start: 20121121, end: 20121210
  2. XARELTO [Suspect]
     Indication: VENOUS THROMBOSIS
     Route: 048
     Dates: start: 20121121, end: 20121210

REACTIONS (6)
  - Vertigo [Unknown]
  - Abnormal behaviour [Unknown]
  - Haemoptysis [Recovered/Resolved]
  - Malaise [Unknown]
  - Palpitations [Unknown]
  - Dyspnoea [Unknown]
